FAERS Safety Report 24083558 (Version 2)
Quarter: 2024Q3

REPORT INFORMATION
  Report Type: Spontaneous
  Country: IT (occurrence: IT)
  Receive Date: 20240712
  Receipt Date: 20240813
  Transmission Date: 20241016
  Serious: Yes (Other)
  Sender: RANBAXY
  Company Number: IT-SUN PHARMACEUTICAL INDUSTRIES LTD-2024RR-454781

PATIENT
  Age: 74 Year
  Sex: Female
  Weight: 42 kg

DRUGS (2)
  1. GEMCITABINE [Suspect]
     Active Substance: GEMCITABINE
     Indication: Adenocarcinoma pancreas
     Dosage: 1000 MG DAY 1,8,15 EVERY 28 DAYS
     Route: 040
     Dates: start: 20231111, end: 20240212
  2. ABRAXANE [Suspect]
     Active Substance: PACLITAXEL
     Indication: Adenocarcinoma pancreas
     Dosage: 120 MG DAY1,8,15 EVERY 28 DAYS
     Route: 040
     Dates: start: 20231211, end: 20231211

REACTIONS (3)
  - Leukopenia [Recovered/Resolved]
  - Thrombocytopenia [Recovered/Resolved]
  - Neutropenia [Recovered/Resolved]

NARRATIVE: CASE EVENT DATE: 20231215
